FAERS Safety Report 15692025 (Version 1)
Quarter: 2018Q4

REPORT INFORMATION
  Report Type: Report from Study
  Country: US (occurrence: US)
  Receive Date: 20181205
  Receipt Date: 20181205
  Transmission Date: 20190205
  Serious: Yes (Hospitalization)
  Sender: FDA-Public Use
  Company Number: US-THERATECHNOLOGIES, INC.-TH-2018-00196

PATIENT

DRUGS (13)
  1. EGRIFTA [Suspect]
     Active Substance: TESAMORELIN
     Dosage: 2 MG MILLIGRAM(S), DAILY
     Route: 058
     Dates: start: 20180208
  2. VITAMIN D [Concomitant]
     Active Substance: CHOLECALCIFEROL
     Indication: PROPHYLAXIS
  3. IRON [Concomitant]
     Active Substance: IRON
     Indication: IRON DEFICIENCY ANAEMIA
  4. EGRIFTA [Suspect]
     Active Substance: TESAMORELIN
     Dosage: 2 MG MILLIGRAM(S), DAILY
     Route: 058
     Dates: start: 20180131, end: 20180204
  5. DOLUTEGRAVIR [Concomitant]
     Active Substance: DOLUTEGRAVIR
     Indication: HIV INFECTION
     Dosage: UNK
     Dates: start: 2016
  6. TESTOSTERONE. [Concomitant]
     Active Substance: TESTOSTERONE
     Indication: HYPOGONADISM
  7. STRATTERA [Concomitant]
     Active Substance: ATOMOXETINE HYDROCHLORIDE
     Indication: ATTENTION DEFICIT/HYPERACTIVITY DISORDER
     Dosage: 80 MG MILLIGRAM(S), QD
     Route: 048
  8. GABAPENTIN. [Concomitant]
     Active Substance: GABAPENTIN
     Indication: NEUROPATHY PERIPHERAL
     Dosage: 600 MG MILLIGRAM(S), TID
     Route: 048
  9. ASPIRIN. [Concomitant]
     Active Substance: ASPIRIN
     Indication: PROPHYLAXIS
     Dosage: 81 MG MILLIGRAM(S), DAILY
     Route: 048
  10. RITALIN [Concomitant]
     Active Substance: METHYLPHENIDATE HYDROCHLORIDE
  11. EGRIFTA [Suspect]
     Active Substance: TESAMORELIN
     Indication: NON-ALCOHOLIC STEATOHEPATITIS
     Dosage: 2 MG MILLIGRAM(S), DAILY
     Route: 058
     Dates: start: 20170310, end: 20180129
  12. EMTRICITABINE W/TENOFOVIR ALAFENAMIDE [Concomitant]
     Active Substance: EMTRICITABINE\TENOFOVIR ALAFENAMIDE FUMARATE
     Indication: HIV INFECTION
     Dosage: UNK
     Dates: start: 2016
  13. PROTONIX [Concomitant]
     Active Substance: PANTOPRAZOLE SODIUM
     Indication: REFLUX GASTRITIS
     Dosage: 40 MG MILLIGRAM(S), QD
     Route: 048

REACTIONS (2)
  - Pneumonia [Recovering/Resolving]
  - Influenza [Recovering/Resolving]

NARRATIVE: CASE EVENT DATE: 20180129
